FAERS Safety Report 15189585 (Version 1)
Quarter: 2018Q3

REPORT INFORMATION
  Report Type: Spontaneous
  Country: US (occurrence: US)
  Receive Date: 20180724
  Receipt Date: 20180724
  Transmission Date: 20181010
  Serious: No
  Sender: FDA-Public Use
  Company Number: US-009507513-1807USA006322

PATIENT
  Sex: Female

DRUGS (9)
  1. TIMOLO [Concomitant]
  2. VITAMINS (UNSPECIFIED) [Concomitant]
     Active Substance: VITAMINS
  3. OMEGA?3 MARINE TRIGLYCERIDES [Concomitant]
     Active Substance: FISH OIL
  4. RESTASIS [Concomitant]
     Active Substance: CYCLOSPORINE
  5. INTRON A [Suspect]
     Active Substance: INTERFERON ALFA-2B
     Dosage: STRENGTH: 6MU/ML
     Route: 058
     Dates: start: 20150728
  6. COENZYME A [Concomitant]
     Active Substance: COENZYME A
  7. ESCITALOPRAM [Concomitant]
     Active Substance: ESCITALOPRAM OXALATE
  8. LISINOPRIL. [Concomitant]
     Active Substance: LISINOPRIL
  9. POTASSIUM CHLORIDE. [Concomitant]
     Active Substance: POTASSIUM CHLORIDE

REACTIONS (1)
  - Influenza like illness [Unknown]
